FAERS Safety Report 9200646 (Version 1)
Quarter: 2013Q1

REPORT INFORMATION
  Report Type: Spontaneous
  Country: CH (occurrence: CH)
  Receive Date: 20130331
  Receipt Date: 20130331
  Transmission Date: 20140127
  Serious: Yes (Other)
  Sender: FDA-Public Use
  Company Number: CH-TEVA-394617ISR

PATIENT
  Sex: Female
  Weight: 2.76 kg

DRUGS (3)
  1. UVAMINE [Suspect]
     Route: 064
     Dates: start: 2012, end: 20121126
  2. ABILIFY [Suspect]
     Route: 064
  3. TEMESTA [Suspect]
     Dosage: LONG TERM THERAPY FOR PARANOID SCHIZOPHRENIA (MOTHER), 1 MG PER DAY, START AND STOP DATES UNKNOWN
     Route: 064

REACTIONS (2)
  - Foetal growth restriction [Unknown]
  - Maternal drugs affecting foetus [None]
